FAERS Safety Report 4348237-4 (Version None)
Quarter: 2004Q2

REPORT INFORMATION
  Report Type: 
  Country: None (occurrence: None)
  Receive Date: 20040422
  Receipt Date: 20040405
  Transmission Date: 20050107
  Serious: Yes (Hospitalization)
  Sender: FDA-Public Use
  Company Number: FR_040403867

PATIENT
  Age: 1 Day
  Sex: Female
  Weight: 3 kg

DRUGS (5)
  1. PROZAC [Suspect]
     Dates: start: 20030103, end: 20030919
  2. XANAX [Concomitant]
  3. STILNOX (ZOLPIDEM) [Concomitant]
  4. CLONAZEPAM [Concomitant]
  5. MYOLASTAN (TETRAZEPAM) [Concomitant]

REACTIONS (2)
  - BRADYCARDIA NEONATAL [None]
  - MATERNAL DRUGS AFFECTING FOETUS [None]
